FAERS Safety Report 8339672-8 (Version None)
Quarter: 2012Q2

REPORT INFORMATION
  Report Type: 
  Country: None (occurrence: None)
  Receive Date: 20120507
  Receipt Date: 20120504
  Transmission Date: 20120825
  Serious: Yes (Death, Hospitalization, Other)
  Sender: FDA-Public Use
  Company Number: PHFR2011GB006964

PATIENT
  Sex: Male

DRUGS (2)
  1. CLOZARIL [Suspect]
     Indication: SCHIZOPHRENIA
     Route: 048
     Dates: start: 19980826
  2. SIMVASTATIN [Concomitant]

REACTIONS (7)
  - SEPSIS [None]
  - MALAISE [None]
  - ANTIPSYCHOTIC DRUG LEVEL BELOW THERAPEUTIC [None]
  - MYOCARDITIS [None]
  - MEGACOLON [None]
  - INTESTINAL DILATATION [None]
  - COLITIS ISCHAEMIC [None]
